FAERS Safety Report 8772872 (Version 2)
Quarter: 2012Q4

REPORT INFORMATION
  Report Type: 
  Country: AU (occurrence: AU)
  Receive Date: 20120907
  Receipt Date: 20120920
  Transmission Date: 20130627
  Serious: Yes (Hospitalization)
  Sender: FDA-Public Use
  Company Number: AU-GENZYME-FLUD-1001560

PATIENT
  Age: 67 Year
  Sex: Female
  Weight: 60.95 kg

DRUGS (21)
  1. FLUDARA [Suspect]
     Indication: CHRONIC LYMPHOCYTIC LEUKAEMIA
     Dosage: 40 mg, qd
     Route: 048
     Dates: start: 20120426, end: 20120820
  2. RITUXIMAB [Suspect]
     Indication: CHRONIC LYMPHOCYTIC LEUKAEMIA
     Dosage: 830 mg, q4w
     Route: 042
     Dates: start: 20120426, end: 20120816
  3. CYCLOPHOSPHAMIDE [Suspect]
     Indication: CHRONIC LYMPHOCYTIC LEUKAEMIA
     Dosage: 250 mg, qd
     Route: 048
     Dates: start: 20120426, end: 20120820
  4. COTRIMOXAZOLE [Concomitant]
     Indication: PROPHYLAXIS
     Dosage: UNK
     Route: 065
     Dates: start: 20120426
  5. METOCLOPRAMIDE [Concomitant]
     Indication: ANTIEMETIC SUPPORTIVE CARE
     Dosage: UNK
     Route: 065
     Dates: start: 20120426, end: 20120619
  6. BRANISETRON [Concomitant]
     Indication: ANTIEMETIC SUPPORTIVE CARE
     Dosage: UNK
     Route: 065
     Dates: start: 20120426
  7. GLUCOSAMINE [Concomitant]
     Indication: SUPPLEMENTATION THERAPY
     Dosage: UNK
     Route: 065
     Dates: start: 20110602
  8. EVENING PRIMROSE OIL [Concomitant]
     Indication: SUPPLEMENTATION THERAPY
     Dosage: UNK
     Route: 065
     Dates: start: 20110602
  9. MAGNESIUM [Concomitant]
     Indication: SUPPLEMENTATION THERAPY
     Dosage: UNK
     Route: 065
     Dates: start: 20110602
  10. VITAMIN D [Concomitant]
     Indication: SUPPLEMENTATION THERAPY
     Dosage: UNK
     Route: 065
     Dates: start: 20110602
  11. ONDANSETRON [Concomitant]
     Indication: ANTIEMETIC SUPPORTIVE CARE
     Dosage: UNK
     Route: 065
     Dates: start: 20120619
  12. POTASSIUM SLOW K [Concomitant]
     Indication: SUPPLEMENTATION THERAPY
     Dosage: UNK
     Route: 065
     Dates: start: 20120522
  13. OMEPRAZOLE [Concomitant]
     Indication: OESOPHAGITIS
     Dosage: UNK
     Route: 065
     Dates: start: 20120713
  14. FLUCONAZOLE [Concomitant]
     Indication: PROPHYLAXIS
     Dosage: UNK
     Route: 065
     Dates: start: 20120713
  15. VALTREX [Concomitant]
     Indication: PROPHYLAXIS
     Dosage: UNK
     Route: 065
     Dates: start: 20120713
  16. FENTANYL [Concomitant]
     Indication: MOUTH ULCERATION
     Dosage: UNK
     Route: 065
     Dates: start: 20120906
  17. FILGRASTIM [Concomitant]
     Indication: NEUTROPENIA
     Dosage: UNK
     Route: 065
     Dates: start: 20120906, end: 20120907
  18. PHENERGAN [Concomitant]
     Indication: PRURITUS
     Dosage: UNK
     Route: 065
     Dates: start: 20120905, end: 20120909
  19. COLOXYL WITH SENNA [Concomitant]
     Indication: CONSTIPATION
     Dosage: UNK
     Route: 065
     Dates: start: 20120904, end: 20120907
  20. OXYCODONE [Concomitant]
     Indication: MOUTH ULCERATION
     Dosage: UNK
     Route: 065
     Dates: start: 20120902, end: 20120908
  21. PINK LADY (MUCAINE/XYLOCAINE) [Concomitant]
     Indication: MOUTH ULCERATION
     Dosage: UNK
     Route: 065
     Dates: start: 20120903, end: 20120904

REACTIONS (3)
  - Febrile neutropenia [Recovered/Resolved]
  - Mouth ulceration [Unknown]
  - Lip injury [Unknown]
